FAERS Safety Report 7064245-7 (Version None)
Quarter: 2010Q4

REPORT INFORMATION
  Report Type: 
  Country: None (occurrence: None)
  Receive Date: 20101027
  Receipt Date: 20101014
  Transmission Date: 20110411
  Serious: Yes (Hospitalization)
  Sender: FDA-Public Use
  Company Number: CA-ELI_LILLY_AND_COMPANY-CA201010003608

PATIENT
  Age: 50 Year
  Sex: Female

DRUGS (24)
  1. FORTEO [Suspect]
     Indication: OSTEOPOROSIS
     Dosage: 20 UG, DAILY (1/D)
     Dates: start: 20090220
  2. ORPHENADRINE CITRATE [Concomitant]
  3. RHINOCORT [Concomitant]
  4. MIRAPEX [Concomitant]
  5. SYMBICORT [Concomitant]
  6. ATIVAN [Concomitant]
  7. BUSCOPAN [Concomitant]
  8. LYRICA [Concomitant]
  9. ZOFRAN [Concomitant]
  10. LACTULOSE [Concomitant]
  11. SPIRIVA [Concomitant]
  12. DURAGESIC-100 [Concomitant]
  13. DARVON [Concomitant]
  14. ASPIRIN [Concomitant]
  15. VENTOLIN [Concomitant]
  16. SINGULAIR [Concomitant]
  17. CLONIDINE [Concomitant]
  18. SULCRATE [Concomitant]
  19. XANAX [Concomitant]
  20. CYPROHEPTADINE HCL [Concomitant]
  21. DILAUDID [Concomitant]
  22. MAXERAN [Concomitant]
  23. COUMADIN [Concomitant]
  24. PREVACID [Concomitant]

REACTIONS (2)
  - COLITIS ULCERATIVE [None]
  - HAEMORRHAGE [None]
